FAERS Safety Report 17189653 (Version 1)
Quarter: 2019Q4

REPORT INFORMATION
  Report Type: Spontaneous
  Country: DK (occurrence: DK)
  Receive Date: 20191223
  Receipt Date: 20191223
  Transmission Date: 20200122
  Serious: Yes (Other)
  Sender: FDA-Public Use
  Company Number: DK-GLAXOSMITHKLINE-DK2019228818

PATIENT
  Age: 49 Year
  Sex: Female

DRUGS (2)
  1. ZINACEF [Suspect]
     Active Substance: CEFUROXIME SODIUM
     Indication: C-REACTIVE PROTEIN INCREASED
     Dosage: STRENGTH AND DOSE ARE UNKNOWN
     Route: 065
     Dates: start: 20180106, end: 20180108
  2. BUDESONIDE. [Concomitant]
     Active Substance: BUDESONIDE
     Indication: COLITIS MICROSCOPIC
     Dosage: STRENGTH AND DOSE ARE UNKNOWN
     Route: 065
     Dates: start: 2018

REACTIONS (5)
  - Herpes ophthalmic [Recovered/Resolved with Sequelae]
  - Visual impairment [Not Recovered/Not Resolved]
  - Corneal scar [Not Recovered/Not Resolved]
  - Lacrimation decreased [Not Recovered/Not Resolved]
  - Rash pruritic [Recovered/Resolved]

NARRATIVE: CASE EVENT DATE: 2018
